FAERS Safety Report 13063448 (Version 1)
Quarter: 2016Q4

REPORT INFORMATION
  Report Type: Spontaneous
  Country: US (occurrence: None)
  Receive Date: 20161220
  Receipt Date: 20161220
  Transmission Date: 20170207
  Serious: No
  Sender: FDA-Public Use
  Company Number: UNT-2016-017024

PATIENT
  Age: 55 Year
  Sex: Female
  Weight: 92.6 kg

DRUGS (1)
  1. TYVASO [Suspect]
     Active Substance: TREPROSTINIL
     Indication: PULMONARY HYPERTENSION
     Dosage: 18-54 UG, QID, INHALATION
     Route: 055
     Dates: start: 20150928

REACTIONS (4)
  - Incorrect dose administered by device [None]
  - Cough [None]
  - Device issue [None]
  - Device malfunction [None]
